FAERS Safety Report 24796303 (Version 1)
Quarter: 2025Q1

REPORT INFORMATION
  Report Type: Report from Study
  Country: US (occurrence: US)
  Receive Date: 20250101
  Receipt Date: 20250101
  Transmission Date: 20250408
  Serious: Yes (Other)
  Sender: ACADIA PHARMACEUTICALS
  Company Number: US-ACADIA PHARMACEUTICALS INC.-ACA-2024-PIM-008927

PATIENT
  Sex: Male

DRUGS (2)
  1. NUPLAZID [Suspect]
     Active Substance: PIMAVANSERIN TARTRATE
     Indication: Parkinson^s disease
     Dosage: 34 MILLIGRAM, QD
     Route: 048
     Dates: start: 20240624
  2. DROXIDOPA [Concomitant]
     Active Substance: DROXIDOPA

REACTIONS (4)
  - Diabetes mellitus [Unknown]
  - Renal disorder [Unknown]
  - Hypotension [Unknown]
  - Dyskinesia [Unknown]
